FAERS Safety Report 8451847-6 (Version None)
Quarter: 2012Q2

REPORT INFORMATION
  Report Type: 
  Country: None (occurrence: None)
  Receive Date: 20120620
  Receipt Date: 20120403
  Transmission Date: 20120825
  Serious: No
  Sender: FDA-Public Use
  Company Number: US-VERTEX PHARMACEUTICALS INC.-AE-2012-004109

PATIENT
  Sex: Male
  Weight: 81.72 kg

DRUGS (5)
  1. INCIVEK [Suspect]
     Indication: HEPATITIS C
     Route: 048
     Dates: start: 20120307
  2. OXYCODONE HCL [Concomitant]
  3. PEGASYS [Concomitant]
     Indication: HEPATITIS C
     Route: 058
     Dates: start: 20120307
  4. VALIUM [Concomitant]
  5. RIBAVIRIN [Concomitant]
     Indication: HEPATITIS C
     Route: 048
     Dates: start: 20120307

REACTIONS (6)
  - PAIN [None]
  - PRODUCTIVE COUGH [None]
  - FATIGUE [None]
  - PULMONARY OEDEMA [None]
  - ANXIETY [None]
  - PYREXIA [None]
